FAERS Safety Report 4270400-1 (Version None)
Quarter: 2004Q1

REPORT INFORMATION
  Report Type: 
  Country: None (occurrence: None)
  Receive Date: 20040113
  Receipt Date: 20040113
  Transmission Date: 20041129
  Serious: Yes (Other)
  Sender: FDA-Public Use
  Company Number: None

PATIENT
  Age: 47 Year

DRUGS (5)
  1. MONTELUKAST [Suspect]
     Indication: RHINITIS ALLERGIC
     Dosage: 10 MG QD
     Dates: start: 20030528, end: 20040613
  2. RABEPRAZOLE SODIUM [Concomitant]
  3. ASPIRIN [Concomitant]
  4. FOSINOPRIL SODIUM [Concomitant]
  5. GABAPENTIN [Concomitant]

REACTIONS (1)
  - MIGRAINE [None]
